FAERS Safety Report 7645893-X (Version None)
Quarter: 2011Q3

REPORT INFORMATION
  Report Type: 
  Country: None (occurrence: None)
  Receive Date: 20110729
  Receipt Date: 20110720
  Transmission Date: 20111222
  Serious: Yes (Death, Other)
  Sender: FDA-Public Use
  Company Number: US-BAYER-2011-040683

PATIENT
  Age: 18 Year
  Sex: Female
  Weight: 63.492 kg

DRUGS (9)
  1. AMIODARONE HCL [Concomitant]
  2. YAZ [Suspect]
     Indication: MENSTRUATION IRREGULAR
  3. IBUPROFEN [Concomitant]
     Indication: ARTHRALGIA
     Dosage: 1-3 PER DAY
     Route: 048
     Dates: start: 20100922
  4. NARCAN [Concomitant]
  5. EPINEPHRINE [Concomitant]
  6. YAZ [Suspect]
     Indication: ACNE
     Dosage: UNK
     Route: 048
     Dates: start: 20090901, end: 20100901
  7. NORCO [Concomitant]
     Indication: ARTHRALGIA
     Dosage: UNK
     Dates: start: 20100922
  8. MELATONIN [Concomitant]
     Dosage: UNK
     Dates: start: 20100901
  9. ATROPINE [Concomitant]

REACTIONS (7)
  - THROMBOSIS [None]
  - CIRCULATORY COLLAPSE [None]
  - CONVULSION [None]
  - CARDIAC ARREST [None]
  - PULMONARY EMBOLISM [None]
  - DYSPNOEA [None]
  - CHEST PAIN [None]
